FAERS Safety Report 4306282-9 (Version None)
Quarter: 2004Q1

REPORT INFORMATION
  Report Type: 
  Country: None (occurrence: None)
  Receive Date: 20040225
  Receipt Date: 20030421
  Transmission Date: 20041129
  Serious: No
  Sender: FDA-Public Use
  Company Number: US-BRISTOL-MYERS SQUIBB COMPANY-12257879

PATIENT
  Age: 64 Year
  Sex: Male
  Weight: 102 kg

DRUGS (3)
  1. EXCEDRIN (MIGRAINE) [Suspect]
     Indication: HEADACHE
     Dosage: # OF DOSAGES:  1 EVERY 4 TO 5 HOURS, OR 9-10 DOSAGE FORM ^IN SHORT TIME.^
     Route: 048
  2. EXCEDRIN (MIGRAINE) [Suspect]
     Indication: PAIN
     Dosage: # OF DOSAGES:  1 EVERY 4 TO 5 HOURS, OR 9-10 DOSAGE FORM ^IN SHORT TIME.^
     Route: 048
  3. PAIN MEDICATIONS [Concomitant]

REACTIONS (1)
  - UNEVALUABLE EVENT [None]
